FAERS Safety Report 25138571 (Version 1)
Quarter: 2025Q1

REPORT INFORMATION
  Report Type: Report from Study
  Country: IL (occurrence: IL)
  Receive Date: 20250330
  Receipt Date: 20250330
  Transmission Date: 20250408
  Serious: Yes (Other)
  Sender: ABBVIE
  Company Number: IL-ABBVIE-6197351

PATIENT
  Sex: Female

DRUGS (1)
  1. SKYRIZI [Suspect]
     Active Substance: RISANKIZUMAB-RZAA
     Indication: Product used for unknown indication
     Dosage: FORM STRENGTH: 600 MILLIGRAM
     Route: 042

REACTIONS (5)
  - Intestinal obstruction [Unknown]
  - Abdominal pain [Not Recovered/Not Resolved]
  - Dyschezia [Unknown]
  - Faeces hard [Unknown]
  - Asthenia [Unknown]
